FAERS Safety Report 11186087 (Version 2)
Quarter: 2015Q3

REPORT INFORMATION
  Report Type: Spontaneous
  Country: US (occurrence: US)
  Receive Date: 20150612
  Receipt Date: 20150702
  Transmission Date: 20151125
  Serious: Yes (Other)
  Sender: FDA-Public Use
  Company Number: US-ELI_LILLY_AND_COMPANY-US201506001172

PATIENT
  Sex: Female

DRUGS (3)
  1. CYMBALTA [Suspect]
     Active Substance: DULOXETINE HYDROCHLORIDE
     Indication: ARTHRITIS
  2. CYMBALTA [Suspect]
     Active Substance: DULOXETINE HYDROCHLORIDE
     Indication: DEPRESSION
     Dosage: 30 MG, TID
     Route: 065
     Dates: end: 2010
  3. PROZAC [Suspect]
     Active Substance: FLUOXETINE HYDROCHLORIDE
     Indication: PRODUCT USED FOR UNKNOWN INDICATION
     Dosage: 30 MG, TID
     Route: 065

REACTIONS (9)
  - Dementia [Not Recovered/Not Resolved]
  - Thyroid disorder [Unknown]
  - Memory impairment [Not Recovered/Not Resolved]
  - Thinking abnormal [Unknown]
  - Drug ineffective [Unknown]
  - Weight increased [Unknown]
  - Gait disturbance [Unknown]
  - Panic attack [Not Recovered/Not Resolved]
  - Overdose [Unknown]
